FAERS Safety Report 7926827-7 (Version None)
Quarter: 2011Q4

REPORT INFORMATION
  Report Type: 
  Country: None (occurrence: None)
  Receive Date: 20111118
  Receipt Date: 20111108
  Transmission Date: 20120403
  Serious: Yes (Hospitalization, Other)
  Sender: FDA-Public Use
  Company Number: US-BAYER-201036355NA

PATIENT
  Age: 22 Year
  Sex: Female
  Weight: 63.492 kg

DRUGS (34)
  1. ALBUTEROL [Concomitant]
     Indication: ASTHMA
  2. PHENERGAN [Concomitant]
  3. NEURONTIN [Concomitant]
  4. ANTIBIOTICS [Concomitant]
  5. DILAUDID [Concomitant]
     Route: 042
  6. PROAIR HFA [Concomitant]
     Indication: ASTHMA
  7. REGLAN [Concomitant]
  8. VICODIN [Concomitant]
  9. DOMPERIDONE [Concomitant]
  10. CYMBALTA [Concomitant]
  11. I.V. SOLUTIONS [Concomitant]
  12. LEVSIN [Concomitant]
  13. TIGAN [Concomitant]
  14. ATIVAN [Concomitant]
  15. DROSPIRENONE AND ETHINYL ESTRADIOL [Concomitant]
     Dosage: 0.03 MG, QD
  16. ATARAX [Concomitant]
  17. YAZ [Suspect]
     Indication: CONTRACEPTION
     Dosage: UNK
     Route: 048
     Dates: start: 20010101, end: 20090801
  18. DROSPIRENONE AND ETHINYL ESTRADIOL [Suspect]
     Indication: PRODUCT USED FOR UNKNOWN INDICATION
     Route: 048
     Dates: start: 20010101
  19. THORAZINE [Concomitant]
  20. LEVBID [Concomitant]
  21. PRILOSEC [Concomitant]
  22. YASMIN [Suspect]
     Indication: CONTRACEPTION
     Dosage: UNK
     Route: 048
     Dates: start: 20010101, end: 20090801
  23. METOPROLOL RETARD [Concomitant]
     Indication: CARDIAC DISORDER
  24. ZOFRAN [Concomitant]
     Route: 042
  25. KEFLEX [Concomitant]
  26. LYRICA [Concomitant]
  27. IMODIUM [Concomitant]
  28. TPN [Concomitant]
  29. FAT EMULSIONS [Concomitant]
  30. MORPHINE [Concomitant]
  31. PROPRANOLOL RETARD [Concomitant]
     Indication: CARDIAC DISORDER
  32. BENTYL [Concomitant]
  33. PROMETHAZINE [Concomitant]
  34. AMITRIPTYLINE HCL [Concomitant]

REACTIONS (4)
  - THROMBOSIS [None]
  - GALLBLADDER DISORDER [None]
  - CHOLECYSTITIS CHRONIC [None]
  - BILIARY DYSKINESIA [None]
